FAERS Safety Report 9787516 (Version 1)
Quarter: 2013Q4

REPORT INFORMATION
  Report Type: Report from Study
  Country: BR (occurrence: BR)
  Receive Date: 20131230
  Receipt Date: 20131230
  Transmission Date: 20140711
  Serious: Yes (Other)
  Sender: FDA-Public Use
  Company Number: BR-ROCHE-1326563

PATIENT
  Sex: Female
  Weight: 75 kg

DRUGS (4)
  1. XOLAIR [Suspect]
     Indication: LUNG DISORDER
     Route: 065
  2. MOMETASONE FUROATE [Concomitant]
  3. FORASEQ (BRAZIL) [Concomitant]
  4. SPIRIVA RESPIMAT [Concomitant]

REACTIONS (3)
  - Road traffic accident [Unknown]
  - Upper limb fracture [Unknown]
  - Lower limb fracture [Unknown]
